FAERS Safety Report 17103353 (Version 1)
Quarter: 2019Q4

REPORT INFORMATION
  Report Type: Spontaneous
  Country: US (occurrence: US)
  Receive Date: 20191203
  Receipt Date: 20191203
  Transmission Date: 20200122
  Serious: Yes (Other)
  Sender: FDA-Public Use
  Company Number: US-ROCHE-2481371

PATIENT
  Sex: Female

DRUGS (5)
  1. TAMOXIFEN [Concomitant]
     Active Substance: TAMOXIFEN
  2. HERCEPTIN [Suspect]
     Active Substance: TRASTUZUMAB
     Indication: HER-2 POSITIVE BREAST CANCER
     Route: 042
  3. TAXOTERE [Concomitant]
     Active Substance: DOCETAXEL
  4. CARBOPLATIN. [Concomitant]
     Active Substance: CARBOPLATIN
  5. PERJETA [Suspect]
     Active Substance: PERTUZUMAB
     Indication: HER-2 POSITIVE BREAST CANCER
     Route: 042

REACTIONS (3)
  - Bone cancer metastatic [Unknown]
  - Metastases to lymph nodes [Unknown]
  - Thyroid disorder [Unknown]
